FAERS Safety Report 9861125 (Version 1)
Quarter: 2014Q1

REPORT INFORMATION
  Report Type: Spontaneous
  Country: US (occurrence: US)
  Receive Date: 20140202
  Receipt Date: 20140202
  Transmission Date: 20141002
  Serious: No
  Sender: FDA-Public Use
  Company Number: US-ALLERGAN-1303601US

PATIENT
  Age: 49 Year
  Sex: Female

DRUGS (2)
  1. BOTOX COSMETIC [Suspect]
     Indication: SKIN WRINKLING
     Dosage: 6 UNITS, SINGLE
     Route: 030
     Dates: start: 20130302, end: 20130302
  2. BOTOX COSMETIC [Suspect]
     Dosage: UNK, SINGLE

REACTIONS (3)
  - Drug administered at inappropriate site [Unknown]
  - Facial paresis [Unknown]
  - Facial paresis [Unknown]
